FAERS Safety Report 5398516-7 (Version None)
Quarter: 2007Q3

REPORT INFORMATION
  Report Type: 
  Country: None (occurrence: None)
  Receive Date: 20070726
  Receipt Date: 20061113
  Transmission Date: 20080115
  Serious: No
  Sender: FDA-Public Use
  Company Number: US-AMGEN-KDL200512

PATIENT
  Sex: Male

DRUGS (4)
  1. PROCRIT [Suspect]
     Indication: ANAEMIA OF MALIGNANT DISEASE
     Dates: start: 20061113
  2. NEULASTA [Concomitant]
  3. CISPLATIN [Concomitant]
  4. GEMCITABINE HCL [Concomitant]
     Dates: start: 20061101

REACTIONS (1)
  - MUSCLE SPASMS [None]
